FAERS Safety Report 24623916 (Version 2)
Quarter: 2024Q4

REPORT INFORMATION
  Report Type: Spontaneous
  Country: FR (occurrence: FR)
  Receive Date: 20241115
  Receipt Date: 20241210
  Transmission Date: 20250115
  Serious: Yes (Hospitalization, Other)
  Sender: ALEXION PHARMACEUTICALS
  Company Number: FR-AstraZeneca-CH-00743293AM

PATIENT
  Age: 70 Year
  Weight: 58 kg

DRUGS (22)
  1. LYNPARZA [Suspect]
     Active Substance: OLAPARIB
     Indication: Ovarian cancer
     Dosage: 100 MILLIGRAM, BID
  2. LYNPARZA [Suspect]
     Active Substance: OLAPARIB
     Dosage: 100 MILLIGRAM, BID
     Route: 048
  3. LYNPARZA [Suspect]
     Active Substance: OLAPARIB
     Dosage: 100 MILLIGRAM, BID
  4. LYNPARZA [Suspect]
     Active Substance: OLAPARIB
     Dosage: 100 MILLIGRAM, BID
     Route: 048
  5. LYNPARZA [Suspect]
     Active Substance: OLAPARIB
     Dosage: 200 MILLIGRAM, BID
  6. LYNPARZA [Suspect]
     Active Substance: OLAPARIB
     Dosage: 200 MILLIGRAM, BID
     Route: 048
  7. LYNPARZA [Suspect]
     Active Substance: OLAPARIB
     Dosage: 200 MILLIGRAM, BID
  8. LYNPARZA [Suspect]
     Active Substance: OLAPARIB
     Dosage: 200 MILLIGRAM, BID
     Route: 048
  9. AMLODIPINE [Concomitant]
     Active Substance: AMLODIPINE BESYLATE
     Dosage: 10 MILLIGRAM
     Route: 065
  10. AMLODIPINE [Concomitant]
     Active Substance: AMLODIPINE BESYLATE
     Dosage: 10 MILLIGRAM
     Route: 065
  11. BISOPROLOL [Concomitant]
     Active Substance: BISOPROLOL
     Dosage: 5 MILLIGRAM
     Route: 065
  12. BISOPROLOL [Concomitant]
     Active Substance: BISOPROLOL
     Dosage: 5 MILLIGRAM
     Route: 065
  13. LANSOPRAZOLE [Concomitant]
     Active Substance: LANSOPRAZOLE
     Dosage: 15 MILLIGRAM
     Route: 065
  14. LANSOPRAZOLE [Concomitant]
     Active Substance: LANSOPRAZOLE
     Dosage: 15 MILLIGRAM
     Route: 065
  15. DOLIPRANE [Concomitant]
     Active Substance: ACETAMINOPHEN
     Route: 065
  16. DOLIPRANE [Concomitant]
     Active Substance: ACETAMINOPHEN
     Route: 065
  17. MINERAL OIL [Concomitant]
     Active Substance: MINERAL OIL
     Route: 065
  18. MINERAL OIL [Concomitant]
     Active Substance: MINERAL OIL
     Route: 065
  19. Enteral [Concomitant]
     Route: 065
  20. Enteral [Concomitant]
     Route: 065
  21. MEDICAL FOOD [Concomitant]
     Active Substance: MEDICAL FOOD
     Dosage: 1000 MILLIGRAM, QD
     Route: 065
  22. MEDICAL FOOD [Concomitant]
     Active Substance: MEDICAL FOOD
     Dosage: 1000 MILLIGRAM, QD
     Route: 065

REACTIONS (3)
  - Head and neck cancer [Recovered/Resolved]
  - Dysphagia [Recovered/Resolved]
  - Off label use [Recovered/Resolved]
